FAERS Safety Report 21794640 (Version 2)
Quarter: 2023Q1

REPORT INFORMATION
  Report Type: Spontaneous
  Country: US (occurrence: US)
  Receive Date: 20221229
  Receipt Date: 20230315
  Transmission Date: 20230418
  Serious: No
  Sender: FDA-Public Use
  Company Number: US-Ipsen Biopharmaceuticals, Inc.-2022-34631

PATIENT
  Age: 52 Year
  Sex: Female

DRUGS (3)
  1. DYSPORT [Suspect]
     Active Substance: ABOBOTULINUMTOXINA
     Indication: Cerebral palsy
     Route: 065
  2. DYSPORT [Suspect]
     Active Substance: ABOBOTULINUMTOXINA
     Route: 065
     Dates: start: 2022, end: 2022
  3. VALIUM [Concomitant]
     Active Substance: DIAZEPAM

REACTIONS (6)
  - Toxicity to various agents [Recovered/Resolved]
  - Fatigue [Recovered/Resolved]
  - Muscular weakness [Recovered/Resolved]
  - Mydriasis [Not Recovered/Not Resolved]
  - Photosensitivity reaction [Unknown]
  - Dysarthria [Unknown]

NARRATIVE: CASE EVENT DATE: 20170801
